FAERS Safety Report 8025517-2 (Version None)
Quarter: 2012Q1

REPORT INFORMATION
  Report Type: 
  Country: None (occurrence: None)
  Receive Date: 20120105
  Receipt Date: 20111227
  Transmission Date: 20120608
  Serious: Yes (Hospitalization)
  Sender: FDA-Public Use
  Company Number: NL-MEDIMMUNE-MEDI-0013850

PATIENT
  Sex: Male
  Weight: 6.26 kg

DRUGS (3)
  1. SYNAGIS [Suspect]
     Route: 030
     Dates: start: 20110908, end: 20111004
  2. CO-TRIMOXACOL [Concomitant]
     Dates: start: 20111031
  3. SYNAGIS [Suspect]
     Route: 030
     Dates: start: 20111101, end: 20111101

REACTIONS (2)
  - DIARRHOEA [None]
  - HAEMATOCHEZIA [None]
